FAERS Safety Report 22934367 (Version 3)
Quarter: 2024Q3

REPORT INFORMATION
  Report Type: Report from Study
  Country: CA (occurrence: CA)
  Receive Date: 20230912
  Receipt Date: 20240814
  Transmission Date: 20241017
  Serious: Yes (Hospitalization, Other)
  Sender: TAKEDA
  Company Number: CA-TAKEDA-2023TUS072553

PATIENT
  Sex: Female
  Weight: 75 kg

DRUGS (4)
  1. VEDOLIZUMAB [Suspect]
     Active Substance: VEDOLIZUMAB
     Indication: Crohn^s disease
     Dosage: 300 MILLIGRAM
     Route: 042
     Dates: start: 20230721
  2. VEDOLIZUMAB [Suspect]
     Active Substance: VEDOLIZUMAB
     Dosage: 300 MILLIGRAM
     Route: 042
  3. VEDOLIZUMAB [Suspect]
     Active Substance: VEDOLIZUMAB
     Dosage: 300 MILLIGRAM
     Route: 042
  4. METHOTREXATE [Concomitant]
     Active Substance: METHOTREXATE
     Dosage: 15 MILLIGRAM, 1/WEEK
     Route: 058
     Dates: start: 201308, end: 2015

REACTIONS (11)
  - Mental disorder [Unknown]
  - Cellulitis [Unknown]
  - Gastric ulcer [Unknown]
  - Gastric cancer [Unknown]
  - Gastric polyps [Unknown]
  - Malaise [Unknown]
  - Diarrhoea [Unknown]
  - Frequent bowel movements [Unknown]
  - Abdominal mass [Unknown]
  - Abdominal pain [Unknown]
  - Arthralgia [Unknown]
